FAERS Safety Report 25746645 (Version 1)
Quarter: 2025Q3

REPORT INFORMATION
  Report Type: Spontaneous
  Country: US (occurrence: US)
  Receive Date: 20250901
  Receipt Date: 20250901
  Transmission Date: 20251021
  Serious: No
  Sender: CHATTEM
  Company Number: US-OPELLA-2025OHG026141

PATIENT
  Age: 24 Year
  Sex: Male

DRUGS (1)
  1. ALLEGRA [Suspect]
     Active Substance: FEXOFENADINE HYDROCHLORIDE
     Indication: Urticaria
     Dates: start: 202501

REACTIONS (3)
  - Nasal dryness [Unknown]
  - Rhinalgia [Unknown]
  - Nasal disorder [Unknown]

NARRATIVE: CASE EVENT DATE: 20250101
